FAERS Safety Report 17557755 (Version 1)
Quarter: 2020Q1

REPORT INFORMATION
  Report Type: Spontaneous
  Country: FR (occurrence: FR)
  Receive Date: 20200318
  Receipt Date: 20200318
  Transmission Date: 20200409
  Serious: Yes (Hospitalization)
  Sender: FDA-Public Use
  Company Number: FR-BAYER-2020-045469

PATIENT
  Age: 88 Year
  Sex: Female

DRUGS (10)
  1. LINEZOLIDE ARROW [Suspect]
     Active Substance: LINEZOLID
     Indication: MYCOBACTERIAL INFECTION
     Dosage: 600 MG, QD
     Route: 048
     Dates: start: 20190328, end: 20200225
  2. AERIUS (DESLORATADINE) [Suspect]
     Active Substance: DESLORATADINE
     Indication: PRODUCT USED FOR UNKNOWN INDICATION
     Dosage: 5 MG, QD
     Route: 048
     Dates: end: 20190430
  3. DEXERYL [GLYCEROL;PARAFFIN, LIQUID;WHITE SOFT PARAFFIN] [Concomitant]
     Active Substance: GLYCERIN\MINERAL OIL\PETROLATUM
     Dosage: UNK
  4. CALCIDOSE [CALCIUM CARBONATE;COLECALCIFEROL] [Concomitant]
     Active Substance: CALCIUM CARBONATE\CHOLECALCIFEROL
     Dosage: UNK
  5. DOLIPRANE [Concomitant]
     Active Substance: ACETAMINOPHEN
     Dosage: UNK
  6. IZILOX [Suspect]
     Active Substance: MOXIFLOXACIN HYDROCHLORIDE
     Indication: MYCOBACTERIAL INFECTION
     Dosage: 400 MG, QD
     Route: 048
     Dates: start: 20190328, end: 20190430
  7. BISEPTINE [BENZALKONIUM CHLORIDE;BENZYL ALCOHOL;CHLORHEXIDINE] [Concomitant]
     Dosage: UNK
  8. CLARITHROMYCINE ARROW [Suspect]
     Active Substance: CLARITHROMYCIN
     Indication: MYCOBACTERIAL INFECTION
     Dosage: 1000 MG, QD
     Route: 048
     Dates: start: 20190328, end: 20200225
  9. LERCAN [Concomitant]
     Active Substance: LERCANIDIPINE
     Dosage: UNK
  10. ATARAX [Suspect]
     Active Substance: HYDROXYZINE HYDROCHLORIDE
     Indication: PRODUCT USED FOR UNKNOWN INDICATION
     Dosage: 25 MG, QD
     Route: 048
     Dates: end: 20190430

REACTIONS (2)
  - Fall [Recovered/Resolved]
  - Electrocardiogram QT prolonged [Recovered/Resolved]

NARRATIVE: CASE EVENT DATE: 20190430
